FAERS Safety Report 21609905 (Version 1)
Quarter: 2022Q4

REPORT INFORMATION
  Report Type: Spontaneous
  Country: HU (occurrence: HU)
  Receive Date: 20221117
  Receipt Date: 20221117
  Transmission Date: 20230113
  Serious: Yes (Death, Hospitalization)
  Sender: FDA-Public Use
  Company Number: HU-BAUSCH-BL-2022-025235

PATIENT
  Age: 37 Year
  Sex: Male

DRUGS (1)
  1. ENALAPRIL [Suspect]
     Active Substance: ENALAPRIL
     Indication: Hypertension
     Route: 065

REACTIONS (4)
  - Circulatory collapse [Fatal]
  - Asphyxia [Fatal]
  - Obstructive airways disorder [Fatal]
  - Angioedema [Fatal]
